FAERS Safety Report 18391069 (Version 1)
Quarter: 2020Q4

REPORT INFORMATION
  Report Type: Other
  Country: CA (occurrence: CA)
  Receive Date: 20201015
  Receipt Date: 20201015
  Transmission Date: 20210114
  Serious: Yes (Hospitalization)
  Sender: FDA-Public Use
  Company Number: CA-CELLTRION INC.-2020CA028636

PATIENT

DRUGS (20)
  1. PANTOPRAZOLE [Concomitant]
     Active Substance: PANTOPRAZOLE
  2. METFORMIN [Concomitant]
     Active Substance: METFORMIN HYDROCHLORIDE
     Route: 065
  3. ZOPLICONE [Concomitant]
     Active Substance: ZOPICLONE
  4. DOMPERIDONE [Concomitant]
     Active Substance: DOMPERIDONE
  5. FOLIC ACID. [Concomitant]
     Active Substance: FOLIC ACID
  6. LANTUS [Concomitant]
     Active Substance: INSULIN GLARGINE
  7. METHYLPREDNISOLONE SODIUM SUCCINATE. [Concomitant]
     Active Substance: METHYLPREDNISOLONE SODIUM SUCCINATE
     Dosage: 100.0 MILLIGRAM
     Route: 065
  8. PREDNISONE. [Concomitant]
     Active Substance: PREDNISONE
  9. VALSARTAN. [Concomitant]
     Active Substance: VALSARTAN
  10. RITUXIMAB (UNKNOWN) [Suspect]
     Active Substance: RITUXIMAB
     Indication: RHEUMATOID ARTHRITIS
     Dosage: 1000.0 MG, 1 EVERY 14 DAYS
     Route: 041
  11. ONDANSETRON [Concomitant]
     Active Substance: ONDANSETRON
  12. TYLENOL [Concomitant]
     Active Substance: ACETAMINOPHEN
     Dosage: 650.0 MILLIGRAM
     Route: 065
  13. PAROXETINE. [Concomitant]
     Active Substance: PAROXETINE
  14. BETAHISTINE [Concomitant]
     Active Substance: BETAHISTINE
  15. HUMALOG [Concomitant]
     Active Substance: INSULIN LISPRO
  16. JARDIANCE [Concomitant]
     Active Substance: EMPAGLIFLOZIN
  17. ATIVAN [Concomitant]
     Active Substance: LORAZEPAM
  18. BENADRYL [Concomitant]
     Active Substance: DIPHENHYDRAMINE HYDROCHLORIDE
     Dosage: 50.0 MILLIGRAM
     Route: 065
  19. POTASSIUM CHLORIDE. [Concomitant]
     Active Substance: POTASSIUM CHLORIDE
  20. SYNTHROID [Concomitant]
     Active Substance: LEVOTHYROXINE SODIUM

REACTIONS (3)
  - Gastrointestinal tube insertion [Unknown]
  - Gastric disorder [Unknown]
  - Oxygen saturation decreased [Unknown]
